FAERS Safety Report 17881429 (Version 1)
Quarter: 2020Q2

REPORT INFORMATION
  Report Type: Spontaneous
  Country: US (occurrence: US)
  Receive Date: 20200610
  Receipt Date: 20200610
  Transmission Date: 20200714
  Serious: No
  Sender: FDA-Public Use
  Company Number: US-COLLEGIUM PHARMACEUTICAL, INC.-2019CGM00181

PATIENT
  Age: 63 Year
  Sex: Female
  Weight: 63.04 kg

DRUGS (4)
  1. UNSPECIFIED REFLUX PILL [Concomitant]
  2. XTAMPZA ER [Suspect]
     Active Substance: OXYCODONE
     Indication: PAIN
     Dosage: 9 MG, 2X/DAY (EVERY 12 HOURS)
     Route: 048
     Dates: start: 20190624
  3. UNSPECIFIED ALLERGY PILLS [Concomitant]
  4. SYNTHROID [Concomitant]
     Active Substance: LEVOTHYROXINE SODIUM

REACTIONS (4)
  - Oropharyngeal pain [Not Recovered/Not Resolved]
  - Eye disorder [Not Recovered/Not Resolved]
  - Vision blurred [Not Recovered/Not Resolved]
  - Product substitution issue [Not Recovered/Not Resolved]

NARRATIVE: CASE EVENT DATE: 201906
